FAERS Safety Report 10686854 (Version 1)
Quarter: 2015Q1

REPORT INFORMATION
  Report Type: Spontaneous
  Country: FR (occurrence: FR)
  Receive Date: 20150102
  Receipt Date: 20150102
  Transmission Date: 20150720
  Serious: Yes (Hospitalization)
  Sender: FDA-Public Use
  Company Number: FR-ROCHE-1516378

PATIENT
  Age: 33 Year
  Sex: Male

DRUGS (12)
  1. NEORAL [Concomitant]
     Active Substance: CYCLOSPORINE
     Dosage: 1/0/1?ATLEAST SINCE 2000
     Route: 065
  2. NEORAL [Concomitant]
     Active Substance: CYCLOSPORINE
     Dosage: REDUCED BY HALF
     Route: 065
     Dates: start: 20140228, end: 20140314
  3. PARACETAMOL [Concomitant]
     Active Substance: ACETAMINOPHEN
  4. CORTANCYL [Concomitant]
     Active Substance: PREDNISONE
     Dosage: SINCE AT LEAST 2000
     Route: 065
  5. CORTANCYL [Concomitant]
     Active Substance: PREDNISONE
     Route: 065
     Dates: start: 20140216
  6. CETIRIZINE [Concomitant]
     Active Substance: CETIRIZINE HYDROCHLORIDE
  7. UVEDOSE [Suspect]
     Active Substance: CHOLECALCIFEROL
     Indication: OSTEOPOROSIS
     Route: 048
  8. CORTANCYL [Concomitant]
     Active Substance: PREDNISONE
     Route: 065
     Dates: start: 20140309
  9. MABTHERA [Suspect]
     Active Substance: RITUXIMAB
     Indication: NEPHROPATHY
     Dosage: 375MG/M2
     Route: 041
     Dates: start: 20140207, end: 20140207
  10. MABTHERA [Suspect]
     Active Substance: RITUXIMAB
     Route: 041
     Dates: start: 20140214, end: 20140214
  11. HYDROCORTISONE. [Suspect]
     Active Substance: HYDROCORTISONE
     Indication: PRODUCT USED FOR UNKNOWN INDICATION
     Dosage: 20MG IN THE MORNING, 10 MG IN THE AFTERNOON?DOSE WAS REDUCED BY 10 MG EVERY MONTH
     Route: 048
     Dates: start: 20140403, end: 201407
  12. SOLU-MEDROL [Concomitant]
     Active Substance: METHYLPREDNISOLONE SODIUM SUCCINATE
     Route: 065

REACTIONS (3)
  - Neutrophil count increased [Recovering/Resolving]
  - Arthralgia [Unknown]
  - Eosinophilia [Recovered/Resolved]

NARRATIVE: CASE EVENT DATE: 20140620
